FAERS Safety Report 5141473-9 (Version None)
Quarter: 2006Q4

REPORT INFORMATION
  Report Type: 
  Country: None (occurrence: None)
  Receive Date: 20061101
  Receipt Date: 20061024
  Transmission Date: 20070319
  Serious: Yes (Hospitalization)
  Sender: FDA-Public Use
  Company Number: US-JNJFOC-20061005741

PATIENT
  Sex: Female
  Weight: 67.13 kg

DRUGS (7)
  1. REMICADE [Suspect]
     Route: 042
  2. REMICADE [Suspect]
     Route: 042
  3. REMICADE [Suspect]
     Indication: CROHN'S DISEASE
     Route: 042
  4. FLAGYL [Concomitant]
     Indication: CROHN'S DISEASE
  5. PREDNISONE TAB [Concomitant]
     Indication: CROHN'S DISEASE
     Dosage: ^TAPER^
  6. FOLIC ACID [Concomitant]
     Indication: CROHN'S DISEASE
  7. ELAVIL [Concomitant]
     Dosage: DOSE TAKEN AT HS

REACTIONS (3)
  - FALL [None]
  - HYPOAESTHESIA [None]
  - PARAESTHESIA [None]
